FAERS Safety Report 23044500 (Version 2)
Quarter: 2023Q4

REPORT INFORMATION
  Report Type: Spontaneous
  Country: RO (occurrence: RO)
  Receive Date: 20231009
  Receipt Date: 20231020
  Transmission Date: 20240110
  Serious: Yes (Other)
  Sender: FDA-Public Use
  Company Number: RO-ASTELLAS-2023US029451

PATIENT
  Age: 25 Year
  Sex: Female

DRUGS (7)
  1. GILTERITINIB [Suspect]
     Active Substance: GILTERITINIB
     Indication: FLT3 gene mutation
     Route: 048
     Dates: start: 20211223, end: 20230807
  2. GILTERITINIB [Suspect]
     Active Substance: GILTERITINIB
     Indication: Plasma cell myeloma refractory
  3. ACYCLOVIR [Concomitant]
     Active Substance: ACYCLOVIR
     Indication: Product used for unknown indication
     Route: 065
  4. POSACONAZOLE [Concomitant]
     Active Substance: POSACONAZOLE
     Indication: Product used for unknown indication
     Route: 065
  5. URSODIOL [Concomitant]
     Active Substance: URSODIOL
     Indication: Product used for unknown indication
     Route: 065
  6. LEVETIRACETAM [Concomitant]
     Active Substance: LEVETIRACETAM
     Indication: Product used for unknown indication
     Route: 065
  7. SUMETROLIN [Concomitant]
     Indication: Product used for unknown indication
     Dosage: 2 DF (2 TABLETS), EVERY 12 HOURS (MONDAYS, WEDNESDAYS, FRIDAYS)
     Route: 065

REACTIONS (1)
  - Extrapulmonary tuberculosis [Recovering/Resolving]

NARRATIVE: CASE EVENT DATE: 20230704
